FAERS Safety Report 19435570 (Version 3)
Quarter: 2021Q3

REPORT INFORMATION
  Report Type: Spontaneous
  Country: US (occurrence: US)
  Receive Date: 20210618
  Receipt Date: 20210830
  Transmission Date: 20211014
  Serious: No
  Sender: FDA-Public Use
  Company Number: NVSC2021US130816

PATIENT

DRUGS (1)
  1. KESIMPTA [Suspect]
     Active Substance: OFATUMUMAB
     Indication: MULTIPLE SCLEROSIS
     Route: 065

REACTIONS (18)
  - Rhinorrhoea [Unknown]
  - Pruritus [Unknown]
  - Visual impairment [Unknown]
  - Contusion [Unknown]
  - Injection site coldness [Unknown]
  - Injection site warmth [Unknown]
  - Oral pain [Unknown]
  - Arthralgia [Unknown]
  - Pain [Unknown]
  - Oropharyngeal pain [Unknown]
  - Hypoaesthesia [Unknown]
  - Menstruation delayed [Unknown]
  - Muscular weakness [Unknown]
  - Crying [Unknown]
  - Muscle strain [Unknown]
  - Stress [Unknown]
  - Fatigue [Unknown]
  - Depression [Unknown]
